FAERS Safety Report 8615797 (Version 2)
Quarter: 2013Q3

REPORT INFORMATION
  Report Type: Spontaneous
  Country: US (occurrence: US)
  Receive Date: 20120614
  Receipt Date: 20130716
  Transmission Date: 20140515
  Serious: No
  Sender: FDA-Public Use
  Company Number: US-GLAXOSMITHKLINE-A0971148A

PATIENT
  Age: 71 Year
  Sex: Female

DRUGS (1)
  1. NICORETTE MINIS MINT 2 MG [Suspect]
     Indication: EX-TOBACCO USER
     Dates: start: 20120324, end: 20120324

REACTIONS (5)
  - Headache [Recovered/Resolved]
  - Malaise [Recovered/Resolved]
  - Insomnia [Recovered/Resolved]
  - Tinnitus [Recovered/Resolved]
  - Product quality issue [Unknown]
